FAERS Safety Report 26130724 (Version 1)
Quarter: 2025Q4

REPORT INFORMATION
  Report Type: Spontaneous
  Country: US (occurrence: US)
  Receive Date: 20251208
  Receipt Date: 20251208
  Transmission Date: 20260117
  Serious: No
  Sender: MIRUM PHARMACEUTICALS
  Company Number: US-MIRUM PHARMACEUTICALS, INC.-US-MIR-25-00744

PATIENT
  Sex: Female

DRUGS (1)
  1. CTEXLI [Suspect]
     Active Substance: CHENODIOL
     Indication: Cerebrotendinous xanthomatosis
     Dosage: 250 MILLIGRAM, UNK
     Route: 048

REACTIONS (1)
  - Dysphagia [Not Recovered/Not Resolved]
